FAERS Safety Report 7392200-6 (Version None)
Quarter: 2011Q2

REPORT INFORMATION
  Report Type: 
  Country: None (occurrence: None)
  Receive Date: 20110404
  Receipt Date: 20110328
  Transmission Date: 20111010
  Serious: Yes (Other)
  Sender: FDA-Public Use
  Company Number: B0710127A

PATIENT

DRUGS (2)
  1. RELENZA [Suspect]
     Route: 055
     Dates: start: 20110322, end: 20110323
  2. RELENZA [Suspect]
     Route: 055
     Dates: start: 20110326

REACTIONS (2)
  - AGITATION [None]
  - DELIRIUM [None]
